FAERS Safety Report 18291261 (Version 1)
Quarter: 2020Q3

REPORT INFORMATION
  Report Type: Spontaneous
  Country: US (occurrence: US)
  Receive Date: 20200921
  Receipt Date: 20200921
  Transmission Date: 20201103
  Serious: Yes (Other)
  Sender: FDA-Public Use
  Company Number: US-JNJFOC-A-US2019-194763

PATIENT
  Age: 52 Year
  Sex: Female
  Weight: 68.1 kg

DRUGS (17)
  1. VELETRI [Suspect]
     Active Substance: EPOPROSTENOL
     Dosage: 8 NG/KG, PER MIN
     Route: 042
  2. VELETRI [Suspect]
     Active Substance: EPOPROSTENOL
     Dosage: 10 NG/KG, PER MIN
     Route: 042
  3. VELETRI [Suspect]
     Active Substance: EPOPROSTENOL
     Dosage: 26 NG/KG, PER MIN
     Route: 042
  4. VELETRI [Suspect]
     Active Substance: EPOPROSTENOL
     Dosage: UNK
     Route: 042
  5. IMODIUM [Suspect]
     Active Substance: LOPERAMIDE HYDROCHLORIDE
     Indication: DIARRHOEA
     Route: 065
  6. VELETRI [Suspect]
     Active Substance: EPOPROSTENOL
     Dosage: 24 NG/KG, PER MIN
     Route: 042
  7. VELETRI [Suspect]
     Active Substance: EPOPROSTENOL
     Indication: PULMONARY ARTERIAL HYPERTENSION
     Dosage: 29 NG/KG, PER MIN
     Route: 042
  8. SILDENAFIL CITRATE. [Concomitant]
     Active Substance: SILDENAFIL CITRATE
  9. VELETRI [Suspect]
     Active Substance: EPOPROSTENOL
     Dosage: 12 NG/KG, PER MIN
     Route: 042
  10. VELETRI [Suspect]
     Active Substance: EPOPROSTENOL
     Dosage: 22 NG/KG, PER MIN
     Route: 042
  11. OPSUMIT [Suspect]
     Active Substance: MACITENTAN
     Indication: PULMONARY ARTERIAL HYPERTENSION
     Dosage: 10 MG, QD
     Route: 048
  12. VELETRI [Suspect]
     Active Substance: EPOPROSTENOL
     Dosage: 20 NG/KG, PER MIN
     Route: 042
  13. VELETRI [Suspect]
     Active Substance: EPOPROSTENOL
     Dosage: 23 NG/KG, PER MIN
     Route: 042
  14. CETIRIZINE [Concomitant]
     Active Substance: CETIRIZINE HYDROCHLORIDE
  15. VELETRI [Suspect]
     Active Substance: EPOPROSTENOL
     Dosage: 13 NG/KG, PER MIN
     Route: 042
  16. VELETRI [Suspect]
     Active Substance: EPOPROSTENOL
     Dosage: 17 NG/KG, PER MIN
     Route: 042
  17. VELETRI [Suspect]
     Active Substance: EPOPROSTENOL
     Dosage: 28 NG/KG, PER MIN
     Route: 042

REACTIONS (48)
  - Choking [Unknown]
  - Headache [Unknown]
  - Diarrhoea [Unknown]
  - Infusion site pruritus [Unknown]
  - Dysgeusia [Unknown]
  - Pigmentation disorder [Unknown]
  - Respiratory tract congestion [Unknown]
  - Pyrexia [Unknown]
  - Rash [Unknown]
  - Facial pain [Unknown]
  - Abdominal pain upper [Unknown]
  - Unevaluable event [Unknown]
  - Cough [Unknown]
  - Malaise [Unknown]
  - Adverse event [Unknown]
  - Hypersensitivity [Unknown]
  - Chest pain [Unknown]
  - Toothache [Unknown]
  - Nausea [Unknown]
  - Catheter site erythema [Unknown]
  - Catheter site pruritus [Unknown]
  - Micturition disorder [Unknown]
  - Vomiting [Unknown]
  - Rash papular [Unknown]
  - Skin laxity [Unknown]
  - Catheter site irritation [Unknown]
  - Dehydration [Unknown]
  - Palpitations [Unknown]
  - Dyspnoea [Unknown]
  - Pain in jaw [Unknown]
  - Sinus headache [Unknown]
  - Arthralgia [Unknown]
  - Nasopharyngitis [Unknown]
  - Influenza [Unknown]
  - Nasal congestion [Unknown]
  - Weight decreased [Unknown]
  - Fatigue [Unknown]
  - Device leakage [Unknown]
  - Constipation [Unknown]
  - Chest discomfort [Unknown]
  - Erythema [Unknown]
  - Flushing [Unknown]
  - Device delivery system issue [Unknown]
  - Night sweats [Unknown]
  - Dermatitis contact [Not Recovered/Not Resolved]
  - Secretion discharge [Unknown]
  - Seasonal allergy [Unknown]
  - Overdose [Unknown]
